FAERS Safety Report 15767513 (Version 1)
Quarter: 2018Q4

REPORT INFORMATION
  Report Type: Spontaneous
  Country: US (occurrence: US)
  Receive Date: 20181227
  Receipt Date: 20181227
  Transmission Date: 20190205
  Serious: Yes (Other)
  Sender: FDA-Public Use
  Company Number: US-JNJFOC-20181232447

PATIENT

DRUGS (1)
  1. DOXORUBICIN HYDROCHLORIDE. [Suspect]
     Active Substance: DOXORUBICIN HYDROCHLORIDE
     Indication: HEPATOCELLULAR CARCINOMA
     Dosage: LOADING DOSE: WITH 37.5 MG/ML
     Route: 013

REACTIONS (11)
  - Thrombocytopenia [Unknown]
  - Pyrexia [Unknown]
  - Transaminases increased [Unknown]
  - Blood bilirubin increased [Unknown]
  - Product use issue [Unknown]
  - Off label use [Unknown]
  - Leukopenia [Unknown]
  - Pain [Unknown]
  - Anaemia [Unknown]
  - Fatigue [Unknown]
  - Product use in unapproved indication [Unknown]
